FAERS Safety Report 6183276-2 (Version None)
Quarter: 2009Q2

REPORT INFORMATION
  Report Type: 
  Country: None (occurrence: None)
  Receive Date: 20090507
  Receipt Date: 20090505
  Transmission Date: 20091009
  Serious: Yes (Life-Threatening, Other)
  Sender: FDA-Public Use
  Company Number: PHEH2009US03840

PATIENT
  Sex: Male

DRUGS (15)
  1. RECLAST [Suspect]
     Indication: OSTEOPOROSIS
     Dosage: 5 MG, ONCE/SINGLE
     Route: 042
     Dates: start: 20090313
  2. COREG [Concomitant]
     Indication: HYPERTENSION
     Dosage: 25 MG, BID
     Route: 048
     Dates: start: 20090421
  3. AMLODIPINE [Concomitant]
     Indication: HYPERTENSION
     Dosage: 2.5 MG, QD
     Dates: start: 20090331
  4. ZOCOR [Concomitant]
     Indication: HYPERLIPIDAEMIA
     Dosage: 80 MG, QD
     Route: 048
     Dates: start: 20080723
  5. PREDNISONE [Concomitant]
     Indication: ANKYLOSING SPONDYLITIS
     Dosage: 10 MG, QD
     Route: 048
     Dates: start: 20010921
  6. PLAVIX [Concomitant]
     Dosage: 75 MG, QD
     Route: 048
     Dates: start: 20080128
  7. ACETAMINOPHEN AND HYDROCODONE BITARTRATE [Concomitant]
     Dosage: 5/500MG Q6 PRN
  8. SULFASALAZINE [Concomitant]
     Dosage: 500 MG, QID
     Dates: start: 20090421
  9. FOLIC ACID [Concomitant]
     Dosage: 1 MG, QD
     Dates: start: 20090331
  10. CALCIUM [Concomitant]
     Dosage: 1540 MG, QD
     Dates: start: 20090331
  11. VITAMIN D [Concomitant]
     Dosage: 2200 MG, QD
     Dates: start: 20090331
  12. MULTI-VITAMINS [Concomitant]
     Dosage: UNK
     Dates: start: 20090331
  13. OMEPRAZOLE [Concomitant]
     Dosage: 40 MG, QD
     Dates: start: 20080128
  14. ASPIRIN [Concomitant]
     Dosage: 325 MG, QD
     Dates: start: 20090128
  15. NIFEREX (POLYSACCHARIDE-IRON COMPLEX) [Concomitant]
     Dosage: 150 MG, QD
     Dates: start: 20060726

REACTIONS (3)
  - BLOOD CREATININE INCREASED [None]
  - RENAL ATROPHY [None]
  - RENAL FAILURE ACUTE [None]
